FAERS Safety Report 13013455 (Version 1)
Quarter: 2016Q4

REPORT INFORMATION
  Report Type: Report from Study
  Country: IE (occurrence: IE)
  Receive Date: 20161209
  Receipt Date: 20161209
  Transmission Date: 20170207
  Serious: Yes (Hospitalization)
  Sender: FDA-Public Use
  Company Number: US-ASTRAZENECA-2016SF29801

PATIENT
  Age: 17 Month
  Sex: Male

DRUGS (6)
  1. SYNAGIS [Suspect]
     Active Substance: PALIVIZUMAB
     Indication: BONE MARROW TRANSPLANT
     Dosage: 15.0MG/KG UNKNOWN
     Route: 030
     Dates: start: 20161027
  2. KOPEN [Concomitant]
     Indication: PRODUCT USED FOR UNKNOWN INDICATION
     Route: 050
  3. SYNAGIS [Suspect]
     Active Substance: PALIVIZUMAB
     Indication: MUCOPOLYSACCHARIDOSIS I
     Dosage: 15.0MG/KG UNKNOWN
     Route: 030
     Dates: start: 20151022
  4. SYNAGIS [Suspect]
     Active Substance: PALIVIZUMAB
     Indication: MUCOPOLYSACCHARIDOSIS I
     Dosage: 15.0MG/KG UNKNOWN
     Route: 030
     Dates: start: 20161027
  5. ALDURAZYME [Concomitant]
     Active Substance: LARONIDASE
     Indication: PRODUCT USED FOR UNKNOWN INDICATION
     Dosage: WEEKLY DAY ADMISSION
     Route: 050
  6. SYNAGIS [Suspect]
     Active Substance: PALIVIZUMAB
     Indication: BONE MARROW TRANSPLANT
     Dosage: 15.0MG/KG UNKNOWN
     Route: 030
     Dates: start: 20151022

REACTIONS (1)
  - Lower respiratory tract infection [Recovered/Resolved]

NARRATIVE: CASE EVENT DATE: 201611
